FAERS Safety Report 8600786-6 (Version None)
Quarter: 2012Q3

REPORT INFORMATION
  Report Type: 
  Country: None (occurrence: None)
  Receive Date: 20120806
  Receipt Date: 20120724
  Transmission Date: 20120928
  Serious: Yes (Other)
  Sender: FDA-Public Use
  Company Number: 2012000192

PATIENT
  Age: 84 Year
  Sex: Male

DRUGS (5)
  1. SECTRAL [Concomitant]
  2. ACEON [Suspect]
     Indication: ANGINA PECTORIS
     Dosage: 5 MG, QD, ORAL
     Route: 048
     Dates: start: 20120201, end: 20120515
  3. KARDEGIC (ACETYLSALICYLATE LYSINE) [Concomitant]
  4. ACETAMINOPHEN [Concomitant]
  5. CHONDROSULF (CHONDROITIN SULFATE SODIUM) [Concomitant]

REACTIONS (5)
  - CHOLESTASIS [None]
  - NAUSEA [None]
  - INFLAMMATION [None]
  - ANAEMIA [None]
  - HEPATITIS [None]
